FAERS Safety Report 9297023 (Version 1)
Quarter: 2013Q2

REPORT INFORMATION
  Report Type: Spontaneous
  Country: US (occurrence: US)
  Receive Date: 20130519
  Receipt Date: 20130519
  Transmission Date: 20140414
  Serious: No
  Sender: FDA-Public Use
  Company Number: US-ALLERGAN-1302791US

PATIENT
  Age: 59 Year
  Sex: Female

DRUGS (3)
  1. LASTACAFT [Suspect]
     Indication: EYE ALLERGY
     Dosage: 1 GTT, UNK
     Route: 047
     Dates: start: 2012, end: 201302
  2. LASTACAFT [Suspect]
     Indication: OCULAR HYPERAEMIA
  3. BABY ASA [Concomitant]
     Indication: PROPHYLAXIS
     Dosage: UNK, QD
     Route: 048

REACTIONS (2)
  - Erythema [Recovered/Resolved]
  - Scleral hyperaemia [Recovered/Resolved]
